FAERS Safety Report 5564984-0 (Version None)
Quarter: 2007Q4

REPORT INFORMATION
  Report Type: 
  Country: None (occurrence: None)
  Receive Date: 20071212
  Receipt Date: 20071205
  Transmission Date: 20080405
  Serious: Yes (Other)
  Sender: FDA-Public Use
  Company Number: 2007BI022491

PATIENT
  Age: 48 Year
  Sex: Female

DRUGS (3)
  1. NATALIZUMAB [Suspect]
     Indication: MULTIPLE SCLEROSIS
     Dosage: IV
     Route: 042
  2. NATALIZUMAB [Suspect]
     Indication: MULTIPLE SCLEROSIS
     Dosage: 300 MG; QM; IV
     Route: 042
     Dates: start: 20070626, end: 20070917
  3. AVONEX [Concomitant]

REACTIONS (5)
  - CONDITION AGGRAVATED [None]
  - DELUSION [None]
  - PARANOIA [None]
  - POOR QUALITY SLEEP [None]
  - PSYCHOTIC DISORDER [None]
